FAERS Safety Report 4773283-6 (Version None)
Quarter: 2005Q3

REPORT INFORMATION
  Report Type: 
  Country: None (occurrence: None)
  Receive Date: 20050920
  Receipt Date: 20050907
  Transmission Date: 20060218
  Serious: Yes (Hospitalization)
  Sender: FDA-Public Use
  Company Number: SE-BOEHRINGER INGELHEIM PHARMACEUTICALS, INC.-2005-SW-00388SW

PATIENT
  Sex: Male

DRUGS (5)
  1. ASASANTIN RETARD 25 MG + 200 MG [Suspect]
     Indication: CEREBROVASCULAR ACCIDENT
     Dosage: ASA 50 MG/DIPYRIDAMOL 400 MG
     Route: 048
  2. NEURONTIN [Concomitant]
  3. BEHEPAN [Concomitant]
  4. FOLACIN [Concomitant]
  5. OCULAC [Concomitant]

REACTIONS (5)
  - BRAIN OEDEMA [None]
  - CEREBRAL HAEMORRHAGE [None]
  - DIFFICULTY IN WALKING [None]
  - DYSARTHRIA [None]
  - DYSSTASIA [None]
